FAERS Safety Report 14695898 (Version 2)
Quarter: 2018Q3

REPORT INFORMATION
  Report Type: Spontaneous
  Country: BR (occurrence: BR)
  Receive Date: 20180329
  Receipt Date: 20180706
  Transmission Date: 20181010
  Serious: Yes (Hospitalization)
  Sender: FDA-Public Use
  Company Number: PHHY2018BR053973

PATIENT
  Sex: Female
  Weight: 95 kg

DRUGS (1)
  1. FORASEQ [Suspect]
     Active Substance: BUDESONIDE\FORMOTEROL FUMARATE
     Indication: ASTHMA
     Dosage: UNK UNK, QD
     Route: 055

REACTIONS (4)
  - Wrong technique in device usage process [Unknown]
  - Wrong device used [Unknown]
  - Malaise [Recovering/Resolving]
  - Device issue [Unknown]
